FAERS Safety Report 19895773 (Version 1)
Quarter: 2021Q3

REPORT INFORMATION
  Report Type: Spontaneous
  Country: US (occurrence: US)
  Receive Date: 20210929
  Receipt Date: 20210929
  Transmission Date: 20211014
  Serious: No
  Sender: FDA-Public Use
  Company Number: US-SAREPTA THERAPEUTICS INC.-SRP2021-001656

PATIENT
  Age: 12 Year
  Sex: Male
  Weight: 53.06 kg

DRUGS (2)
  1. EXONDYS 51 [Suspect]
     Active Substance: ETEPLIRSEN
     Indication: DUCHENNE MUSCULAR DYSTROPHY
     Dosage: 1300 MILLIGRAM, WEEKLY
     Route: 042
     Dates: start: 20180821, end: 20210824
  2. EXONDYS 51 [Suspect]
     Active Substance: ETEPLIRSEN
     Dosage: 1600 MILLIGRAM, WEEKLY
     Route: 042
     Dates: start: 20210824

REACTIONS (2)
  - Underdose [Unknown]
  - Product communication issue [Unknown]

NARRATIVE: CASE EVENT DATE: 20210409
